FAERS Safety Report 9880156 (Version 1)
Quarter: 2014Q1

REPORT INFORMATION
  Report Type: Spontaneous
  Country: US (occurrence: US)
  Receive Date: 20140207
  Receipt Date: 20140207
  Transmission Date: 20141002
  Serious: No
  Sender: FDA-Public Use
  Company Number: US-BIOGENIDEC-2014BI009069

PATIENT
  Age: 48 Year
  Sex: Female

DRUGS (6)
  1. TECFIDERA [Suspect]
     Indication: MULTIPLE SCLEROSIS
     Route: 048
     Dates: start: 201310
  2. CALCIUM + VITAMIN D [Concomitant]
  3. EFFEXOR XR [Concomitant]
  4. COUMADIN [Concomitant]
  5. TOVIAZ ER [Concomitant]
  6. BACLOFEN [Concomitant]

REACTIONS (2)
  - Overdose [Unknown]
  - Flushing [Unknown]
